FAERS Safety Report 9434145 (Version 3)
Quarter: 2013Q4

REPORT INFORMATION
  Report Type: Spontaneous
  Country: JP (occurrence: JP)
  Receive Date: 20130801
  Receipt Date: 20131126
  Transmission Date: 20140711
  Serious: Yes (Life-Threatening, Hospitalization, Other)
  Sender: FDA-Public Use
  Company Number: JP-ASTRAZENECA-2013SE56785

PATIENT
  Age: 30518 Day
  Sex: Female
  Weight: 35 kg

DRUGS (6)
  1. NEXIUM [Suspect]
     Indication: DUODENAL ULCER HAEMORRHAGE
     Route: 048
     Dates: start: 20130629, end: 20130705
  2. HYPEN [Suspect]
     Indication: ARTHRITIS
     Route: 048
     Dates: start: 20130702, end: 20130705
  3. BAYASPIRIN [Concomitant]
     Indication: CEREBRAL INFARCTION
     Route: 048
     Dates: start: 20130702
  4. ACTONEL [Concomitant]
     Indication: OSTEOPOROSIS
     Route: 048
     Dates: start: 20130627
  5. DEPAS [Concomitant]
     Indication: SLEEP DISORDER
     Route: 048
     Dates: start: 20130704
  6. GASLON N_OD [Concomitant]
     Indication: GASTRITIS
     Route: 048
     Dates: start: 20130705

REACTIONS (2)
  - Granulocytopenia [Recovering/Resolving]
  - Arthritis [Unknown]
